FAERS Safety Report 15096434 (Version 1)
Quarter: 2018Q3

REPORT INFORMATION
  Report Type: Spontaneous
  Country: TR (occurrence: TR)
  Receive Date: 20180702
  Receipt Date: 20180702
  Transmission Date: 20181010
  Serious: Yes (Hospitalization)
  Sender: FDA-Public Use
  Company Number: PHHY2018TR028948

PATIENT
  Age: 26 Year
  Sex: Male

DRUGS (2)
  1. METHYLPHENIDATE HYDROCHLORIDE. [Suspect]
     Active Substance: METHYLPHENIDATE HYDROCHLORIDE
     Indication: ATTENTION DEFICIT/HYPERACTIVITY DISORDER
     Dosage: 54 MG, QD
     Route: 065
  2. METHYLPHENIDATE HYDROCHLORIDE. [Suspect]
     Active Substance: METHYLPHENIDATE HYDROCHLORIDE
     Dosage: 108 MG, QD
     Route: 065

REACTIONS (6)
  - Psychotic symptom [Recovering/Resolving]
  - Psychomotor hyperactivity [Unknown]
  - Bipolar disorder [Unknown]
  - Mania [Unknown]
  - Therapeutic response decreased [Unknown]
  - Overdose [Unknown]
